FAERS Safety Report 9331707 (Version 1)
Quarter: 2013Q2

REPORT INFORMATION
  Report Type: Spontaneous
  Country: US (occurrence: None)
  Receive Date: 20130603
  Receipt Date: 20130603
  Transmission Date: 20140414
  Serious: No
  Sender: FDA-Public Use
  Company Number: 2012-06400

PATIENT
  Age: 75 Year
  Sex: Female

DRUGS (1)
  1. THERACYS [Suspect]
     Indication: BLADDER CANCER
     Dates: end: 20120604

REACTIONS (2)
  - Arthralgia [None]
  - Local swelling [None]
